FAERS Safety Report 5959394-8 (Version None)
Quarter: 2008Q4

REPORT INFORMATION
  Report Type: 
  Country: None (occurrence: None)
  Receive Date: 20081120
  Receipt Date: 20081006
  Transmission Date: 20090506
  Serious: No
  Sender: FDA-Public Use
  Company Number: A0740612A

PATIENT
  Age: 55 Year
  Sex: Female

DRUGS (2)
  1. VERAMYST [Suspect]
     Indication: DRUG USE FOR UNKNOWN INDICATION
     Route: 065
  2. OVER COUNTER ALLERGY MED [Concomitant]

REACTIONS (5)
  - ADVERSE EVENT [None]
  - DRY EYE [None]
  - LACRIMAL DISORDER [None]
  - VISION BLURRED [None]
  - VISUAL IMPAIRMENT [None]
